FAERS Safety Report 12281571 (Version 1)
Quarter: 2016Q2

REPORT INFORMATION
  Report Type: Spontaneous
  Country: US (occurrence: None)
  Receive Date: 20160418
  Receipt Date: 20160418
  Transmission Date: 20160815
  Serious: Yes (Other)
  Sender: FDA-Public Use
  Company Number: None

PATIENT
  Age: 58 Year
  Sex: Female
  Weight: 63.5 kg

DRUGS (5)
  1. VITAMIN D3 [Concomitant]
     Active Substance: CHOLECALCIFEROL
  2. CELEBREX [Concomitant]
     Active Substance: CELECOXIB
  3. ESTRACE [Suspect]
     Active Substance: ESTRADIOL
     Indication: VULVOVAGINAL DRYNESS
     Dosage: 2X WEEK VAGINAL
     Route: 067
     Dates: start: 20160320, end: 20160405
  4. METHOCARBAMAL [Concomitant]
  5. TRIAMTERENE HCTZ [Concomitant]
     Active Substance: HYDROCHLOROTHIAZIDE\TRIAMTERENE

REACTIONS (3)
  - Abdominal pain [None]
  - Abdominal discomfort [None]
  - Abdominal distension [None]

NARRATIVE: CASE EVENT DATE: 20160407
